FAERS Safety Report 6983649-1 (Version None)
Quarter: 2010Q3

REPORT INFORMATION
  Report Type: 
  Country: None (occurrence: None)
  Receive Date: 20100914
  Receipt Date: 20081118
  Transmission Date: 20110219
  Serious: No
  Sender: FDA-Public Use
  Company Number: US-WYE-H06906008

PATIENT
  Sex: Male

DRUGS (1)
  1. ADVIL LIQUI-GELS [Suspect]
     Indication: MUSCLE SPASMS
     Dosage: UNKNOWN
     Route: 048

REACTIONS (2)
  - ORAL HERPES [None]
  - RASH MACULAR [None]
